FAERS Safety Report 21376454 (Version 1)
Quarter: 2022Q3

REPORT INFORMATION
  Report Type: Spontaneous
  Country: US (occurrence: US)
  Receive Date: 20220926
  Receipt Date: 20220926
  Transmission Date: 20221027
  Serious: Yes (Other)
  Sender: FDA-Public Use
  Company Number: US-PFIZER INC-202201180294

PATIENT
  Age: 59 Year
  Sex: Male
  Weight: 75.75 kg

DRUGS (1)
  1. XELJANZ XR [Suspect]
     Active Substance: TOFACITINIB CITRATE
     Indication: Rheumatoid arthritis
     Dosage: 11 MG
     Route: 048
     Dates: start: 2021

REACTIONS (12)
  - Post-traumatic stress disorder [Unknown]
  - Near death experience [Unknown]
  - COVID-19 [Unknown]
  - Disease recurrence [Unknown]
  - Cough [Unknown]
  - Hypersensitivity [Unknown]
  - Anosmia [Unknown]
  - Ageusia [Recovering/Resolving]
  - Feeling abnormal [Unknown]
  - Depression [Unknown]
  - Intervertebral disc protrusion [Recovering/Resolving]
  - Exostosis [Recovering/Resolving]
